FAERS Safety Report 7682717-9 (Version None)
Quarter: 2011Q3

REPORT INFORMATION
  Report Type: 
  Country: None (occurrence: None)
  Receive Date: 20110815
  Receipt Date: 20110803
  Transmission Date: 20111222
  Serious: Yes (Hospitalization)
  Sender: FDA-Public Use
  Company Number: DK-JNJFOC-20100608248

PATIENT
  Sex: Female
  Weight: 100 kg

DRUGS (7)
  1. OMEPRAZOLE [Concomitant]
     Indication: DYSPEPSIA
     Dates: start: 20091027, end: 20091222
  2. CENTYL [Concomitant]
     Indication: HYPERTENSION
     Route: 048
     Dates: start: 20080619
  3. REMICADE [Suspect]
     Indication: RHEUMATOID ARTHRITIS
     Route: 042
     Dates: start: 20091105, end: 20100211
  4. FOLIMET [Concomitant]
     Indication: VITAMIN SUPPLEMENTATION
     Route: 048
     Dates: start: 20080415, end: 20100211
  5. CENTYL MED KALIUMKLORID (BENDROFLUMETHIAZID, KALIUMKLORID) [Concomitant]
     Indication: HYPERTENSION
     Route: 048
     Dates: start: 20080619
  6. AMLODIPINE [Concomitant]
     Indication: HYPERTENSION
     Dates: start: 20090915
  7. METHOTREXATE [Concomitant]
     Indication: RHEUMATOID ARTHRITIS
     Dates: start: 20080415, end: 20100211

REACTIONS (1)
  - ENDOMETRIAL CANCER [None]
